FAERS Safety Report 5725527-1 (Version None)
Quarter: 2008Q2

REPORT INFORMATION
  Report Type: 
  Country: None (occurrence: None)
  Receive Date: 20080501
  Receipt Date: 20080422
  Transmission Date: 20081010
  Serious: Yes (Other)
  Sender: FDA-Public Use
  Company Number: US-JNJFOC-20080403927

PATIENT
  Sex: Male
  Weight: 94.35 kg

DRUGS (7)
  1. DURAGESIC-100 [Suspect]
     Indication: BACK PAIN
     Route: 062
  2. MORPHINE SUL INJ [Concomitant]
     Indication: BACK PAIN
     Route: 048
  3. GLUCOTROL XL [Concomitant]
     Indication: DIABETES MELLITUS
     Route: 048
  4. ACTOS [Concomitant]
     Indication: DIABETES MELLITUS
     Route: 048
  5. ENALAPRIL [Concomitant]
     Indication: BLOOD PRESSURE
     Route: 048
  6. ZOCOR [Concomitant]
     Indication: BLOOD CHOLESTEROL INCREASED
     Route: 048
  7. NIASPAN [Concomitant]
     Indication: BLOOD CHOLESTEROL INCREASED
     Route: 048

REACTIONS (2)
  - ANAPHYLACTIC SHOCK [None]
  - NEURALGIA [None]
